FAERS Safety Report 9094658 (Version 3)
Quarter: 2013Q3

REPORT INFORMATION
  Report Type: Spontaneous
  Country: US (occurrence: US)
  Receive Date: 20130220
  Receipt Date: 20130806
  Transmission Date: 20140515
  Serious: No
  Sender: FDA-Public Use
  Company Number: US-009507513-1302USA008814

PATIENT
  Age: 22 Year
  Sex: Female

DRUGS (1)
  1. IMPLANON [Suspect]
     Indication: CONTRACEPTION
     Dosage: IN LEFT ARM
     Dates: start: 2011

REACTIONS (4)
  - Metrorrhagia [Unknown]
  - Medical device complication [Not Recovered/Not Resolved]
  - Headache [Unknown]
  - Weight increased [Unknown]
